FAERS Safety Report 7749563-9 (Version None)
Quarter: 2011Q3

REPORT INFORMATION
  Report Type: 
  Country: None (occurrence: None)
  Receive Date: 20110914
  Receipt Date: 20110912
  Transmission Date: 20111222
  Serious: Yes (Life-Threatening, Hospitalization, Other)
  Sender: FDA-Public Use
  Company Number: US-B.I. PHARMACEUTICALS,INC./RIDGEFIELD-2011-BP-17815BP

PATIENT
  Age: 68 Year
  Sex: Male

DRUGS (3)
  1. PRADAXA [Suspect]
     Indication: ATRIAL FIBRILLATION
     Dosage: 300 MG
     Dates: end: 20110701
  2. METOPROLOL [Concomitant]
     Dosage: 50 MG
     Dates: start: 20110429
  3. FLECAINIDE ACETATE [Concomitant]
     Dosage: 300 MG
     Dates: start: 20110429

REACTIONS (2)
  - CEREBROVASCULAR ACCIDENT [None]
  - THROMBOTIC CEREBRAL INFARCTION [None]
